FAERS Safety Report 16358423 (Version 1)
Quarter: 2019Q2

REPORT INFORMATION
  Report Type: Spontaneous
  Country: SG (occurrence: SG)
  Receive Date: 20190527
  Receipt Date: 20190527
  Transmission Date: 20190711
  Serious: Yes (Hospitalization, Other)
  Sender: FDA-Public Use
  Company Number: SG-TEVA-2019-SG-1055571

PATIENT
  Age: 75 Year
  Sex: Female

DRUGS (8)
  1. PREDNISOLONE ACETATE. [Suspect]
     Active Substance: PREDNISOLONE ACETATE
     Indication: IMMUNOSUPPRESSANT DRUG THERAPY
     Dosage: EVERY 3 HOURS
     Route: 061
  2. PREDNISOLONE ACETATE. [Suspect]
     Active Substance: PREDNISOLONE ACETATE
     Indication: IMMUNOSUPPRESSANT DRUG THERAPY
     Dosage: INDEFINITELY
     Route: 061
  3. LOTEPREDNOL ETABONATE [Suspect]
     Active Substance: LOTEPREDNOL ETABONATE
     Indication: TRANSPLANT REJECTION
     Route: 061
  4. FOSCARNET [Suspect]
     Active Substance: FOSCARNET
     Indication: CORNEAL ENDOTHELIITIS
     Route: 042
  5. PREDNISOLONE. [Suspect]
     Active Substance: PREDNISOLONE
     Indication: TRANSPLANT REJECTION
     Route: 048
  6. PREDNISOLONE ACETATE. [Suspect]
     Active Substance: PREDNISOLONE ACETATE
     Indication: IMMUNOSUPPRESSANT DRUG THERAPY
     Route: 061
  7. PREDNISOLONE ACETATE. [Suspect]
     Active Substance: PREDNISOLONE ACETATE
     Indication: IMMUNOSUPPRESSANT DRUG THERAPY
     Route: 061
  8. PREDNISOLONE ACETATE. [Suspect]
     Active Substance: PREDNISOLONE ACETATE
     Indication: IMMUNOSUPPRESSANT DRUG THERAPY
     Route: 061

REACTIONS (3)
  - Nephropathy toxic [Unknown]
  - Cytomegalovirus infection [Recovering/Resolving]
  - Corneal endotheliitis [Recovering/Resolving]
